FAERS Safety Report 16212869 (Version 2)
Quarter: 2020Q2

REPORT INFORMATION
  Report Type: Spontaneous
  Country: US (occurrence: US)
  Receive Date: 20190418
  Receipt Date: 20200423
  Transmission Date: 20200713
  Serious: Yes (Other)
  Sender: FDA-Public Use
  Company Number: US-ASTELLAS-2019US012902

PATIENT
  Age: 68 Year
  Sex: Female

DRUGS (8)
  1. ASPIRIN. [Concomitant]
     Active Substance: ASPIRIN
     Indication: CARDIOVASCULAR DISORDER
     Dosage: UNK UNK, ONCE DAILY
     Route: 048
  2. SERTRALINE [Concomitant]
     Active Substance: SERTRALINE HYDROCHLORIDE
     Indication: DEPRESSION
     Dosage: UNK UNK, ONCE DAILY
     Route: 048
  3. FOSAMAX [Concomitant]
     Active Substance: ALENDRONATE SODIUM
     Indication: OSTEOPOROSIS
     Dosage: UNK UNK, MONTHLY
     Route: 048
  4. LEXISCAN [Suspect]
     Active Substance: REGADENOSON
     Indication: POSITRON EMISSION TOMOGRAM
     Dosage: 0.4 MG/5 ML, ONCE
     Route: 065
     Dates: start: 20190321, end: 20190321
  5. LEXISCAN [Suspect]
     Active Substance: REGADENOSON
     Indication: POSITRON EMISSION TOMOGRAM
     Dosage: 0.4 MG/5 ML, ONCE
     Route: 065
     Dates: start: 20190321, end: 20190321
  6. LEXISCAN [Suspect]
     Active Substance: REGADENOSON
     Indication: POSITRON EMISSION TOMOGRAM
     Dosage: 0.4 MG/5 ML, ONCE
     Route: 065
     Dates: start: 20190321, end: 20190321
  7. LEXISCAN [Suspect]
     Active Substance: REGADENOSON
     Indication: POSITRON EMISSION TOMOGRAM
     Dosage: 0.4 MG/5 ML, ONCE
     Route: 065
     Dates: start: 20190321, end: 20190321
  8. KEPPRA [Concomitant]
     Active Substance: LEVETIRACETAM
     Indication: EPILEPSY
     Dosage: UNK UNK, TWICE DAILY
     Route: 048

REACTIONS (2)
  - Generalised tonic-clonic seizure [Recovered/Resolved]
  - Dyspnoea [Recovered/Resolved]

NARRATIVE: CASE EVENT DATE: 20190321
